FAERS Safety Report 8440907-1 (Version None)
Quarter: 2012Q2

REPORT INFORMATION
  Report Type: 
  Country: None (occurrence: None)
  Receive Date: 20120615
  Receipt Date: 20120606
  Transmission Date: 20120825
  Serious: Yes (Hospitalization)
  Sender: FDA-Public Use
  Company Number: US-BAYER-2012-029983

PATIENT
  Age: 48 Year
  Sex: Female
  Weight: 75.737 kg

DRUGS (7)
  1. CIPROFLAXACIN [Concomitant]
     Dosage: 500 MG, TWICE DAILY
     Route: 048
     Dates: start: 20050723, end: 20110125
  2. SINGULAIR [Concomitant]
     Dosage: 10 MG, DAILY
     Route: 048
     Dates: start: 20070425, end: 20110225
  3. YAZ [Suspect]
     Indication: CONTRACEPTION
     Dosage: UNK
     Dates: start: 20090326, end: 20090603
  4. LOPERDERMINE [Concomitant]
     Indication: GASTROINTESTINAL MOTILITY DISORDER
     Dosage: 2 MG, 2 TIMES DAILY
     Dates: start: 19960101
  5. ALLEGRA [Concomitant]
     Dosage: 180 MG, DAILY
     Route: 048
     Dates: start: 20060223, end: 20110225
  6. SPIRONOLACTONE [Concomitant]
     Dosage: 50 MG, TWICE DAILY
     Dates: start: 20100622, end: 20110121
  7. YAZ [Suspect]
     Dosage: UNK
     Dates: start: 20090326, end: 20090603

REACTIONS (8)
  - PULMONARY EMBOLISM [None]
  - OEDEMA PERIPHERAL [None]
  - DECREASED APPETITE [None]
  - NAUSEA [None]
  - DEEP VEIN THROMBOSIS [None]
  - VOMITING [None]
  - PAIN IN EXTREMITY [None]
  - ABDOMINAL PAIN [None]
